FAERS Safety Report 14237140 (Version 3)
Quarter: 2017Q4

REPORT INFORMATION
  Report Type: Report from Study
  Country: FR (occurrence: FR)
  Receive Date: 20171129
  Receipt Date: 20171222
  Transmission Date: 20180321
  Serious: Yes (Hospitalization)
  Sender: FDA-Public Use
  Company Number: FR-INCYTE CORPORATION-2017IN010150

PATIENT

DRUGS (4)
  1. JAKAVI [Suspect]
     Active Substance: RUXOLITINIB
     Indication: MYELOFIBROSIS
     Dosage: 30 MG, QD
     Route: 048
     Dates: start: 20170124, end: 201708
  2. VIDAZA [Suspect]
     Active Substance: AZACITIDINE
     Dosage: (7 DAYS PER MONTH)
     Route: 042
     Dates: start: 20171012
  3. VIDAZA [Suspect]
     Active Substance: AZACITIDINE
     Indication: ACUTE MYELOID LEUKAEMIA
     Dosage: 75 MG/M2, (7 DAYS PER MONTH)
     Route: 042
     Dates: start: 20161207, end: 201708
  4. JAKAVI [Suspect]
     Active Substance: RUXOLITINIB
     Dosage: UNK
     Route: 048
     Dates: start: 20170928

REACTIONS (11)
  - Weight decreased [Unknown]
  - Malnutrition [Recovering/Resolving]
  - Dysarthria [Recovering/Resolving]
  - Psoas abscess [Recovered/Resolved]
  - Intervertebral disc degeneration [Not Recovered/Not Resolved]
  - Back pain [Unknown]
  - Staphylococcal sepsis [Recovered/Resolved]
  - Splenic abscess [Not Recovered/Not Resolved]
  - Orchitis [Not Recovered/Not Resolved]
  - Hallucination [Unknown]
  - Intervertebral discitis [Not Recovered/Not Resolved]

NARRATIVE: CASE EVENT DATE: 201708
